FAERS Safety Report 6749226-2 (Version None)
Quarter: 2010Q2

REPORT INFORMATION
  Report Type: 
  Country: None (occurrence: None)
  Receive Date: 20100601
  Receipt Date: 20100428
  Transmission Date: 20101027
  Serious: No
  Sender: FDA-Public Use
  Company Number: US-BAYER-201014957BCC

PATIENT
  Sex: Male

DRUGS (1)
  1. FINACEA [Suspect]
     Indication: DRUG USE FOR UNKNOWN INDICATION
     Route: 065
     Dates: end: 20100201

REACTIONS (2)
  - DRY SKIN [None]
  - SKIN EXFOLIATION [None]
